FAERS Safety Report 9157933 (Version 1)
Quarter: 2013Q1

REPORT INFORMATION
  Report Type: Spontaneous
  Country: US (occurrence: None)
  Receive Date: 20130211
  Receipt Date: 20130211
  Transmission Date: 20140127
  Serious: Yes (Hospitalization)
  Sender: FDA-Public Use
  Company Number: TCI2012A07483

PATIENT
  Age: 69 Year
  Sex: Male

DRUGS (9)
  1. NESINA [Suspect]
     Indication: TYPE 2 DIABETES MELLITUS
     Dosage: 25 MG (25 MG, 1 IN 1 D)?
     Route: 048
     Dates: start: 20110927
  2. BLOPRESS (CANDESARTAN CILEXETIL) [Concomitant]
  3. ADETPHOS (ADENOSINE TRIPHOSPHATE, DISODIUM SALT) [Concomitant]
  4. MEILAX (ETHYL LOFLAZEPATE) [Concomitant]
  5. LOXONIN (LOXOPROFEN SODIUM) [Concomitant]
  6. PARIET (RABEPRAZOLE SODIUM) [Concomitant]
  7. STROCAIN (OXETACAINE) [Concomitant]
  8. SELBEX (TEPRENONE) [Concomitant]
  9. FERROMIA (FERROUS SODIUM CITRATE) [Concomitant]

REACTIONS (1)
  - Road traffic accident [None]
